FAERS Safety Report 13645800 (Version 1)
Quarter: 2017Q2

REPORT INFORMATION
  Report Type: Spontaneous
  Country: JP (occurrence: JP)
  Receive Date: 20170613
  Receipt Date: 20170613
  Transmission Date: 20170830
  Serious: Yes (Disabling)
  Sender: FDA-Public Use
  Company Number: JP-009507513-1604JPN013766

PATIENT
  Age: 33 Year
  Sex: Male
  Weight: 72.2 kg

DRUGS (5)
  1. PEGINTRON [Suspect]
     Active Substance: PEGINTERFERON ALFA-2B
     Indication: MALIGNANT MELANOMA
     Dosage: 6 MICROGRAM PER KILOGRAM, QW
     Route: 058
     Dates: start: 20151126, end: 20160819
  2. PEGINTRON [Suspect]
     Active Substance: PEGINTERFERON ALFA-2B
     Dosage: 3 MICROGRAM PER KILOGRAM, QW
     Route: 058
     Dates: start: 20160108, end: 20160812
  3. MYSLEE [Concomitant]
     Active Substance: ZOLPIDEM TARTRATE
     Dosage: UNK
     Route: 048
     Dates: end: 20151113
  4. CEPHARANTHINE [Concomitant]
     Active Substance: CEPHARANTHINE
     Indication: WHITE BLOOD CELL COUNT DECREASED
     Route: 048
     Dates: start: 20151126, end: 20160819
  5. LOXONIN [Concomitant]
     Active Substance: LOXOPROFEN SODIUM
     Indication: HEADACHE
     Dosage: UNK
     Route: 048
     Dates: start: 20151105, end: 20160715

REACTIONS (4)
  - Neutrophil count decreased [Recovered/Resolved with Sequelae]
  - Skin discolouration [Recovered/Resolved]
  - Depressive symptom [Recovered/Resolved with Sequelae]
  - Drug ineffective [Unknown]

NARRATIVE: CASE EVENT DATE: 20151126
